FAERS Safety Report 15407875 (Version 1)
Quarter: 2018Q3

REPORT INFORMATION
  Report Type: Spontaneous
  Country: US (occurrence: US)
  Receive Date: 20180920
  Receipt Date: 20180920
  Transmission Date: 20181010
  Serious: Yes (Hospitalization, Other)
  Sender: FDA-Public Use
  Company Number: US-JNJFOC-20161109659

PATIENT
  Age: 56 Year
  Sex: Female

DRUGS (1)
  1. DARATUMUMAB [Suspect]
     Active Substance: DARATUMUMAB
     Indication: T-CELL LYMPHOMA
     Route: 065

REACTIONS (6)
  - Escherichia bacteraemia [Unknown]
  - Cytomegalovirus infection [Recovered/Resolved]
  - Herpes virus infection [Recovered/Resolved]
  - Pyelonephritis [Unknown]
  - Off label use [Unknown]
  - Viral upper respiratory tract infection [Recovered/Resolved]
